FAERS Safety Report 8060559-2 (Version None)
Quarter: 2012Q1

REPORT INFORMATION
  Report Type: 
  Country: None (occurrence: None)
  Receive Date: 20120120
  Receipt Date: 20120111
  Transmission Date: 20120608
  Serious: Yes (Other)
  Sender: FDA-Public Use
  Company Number: CHPA2012US001094

PATIENT
  Sex: Male

DRUGS (8)
  1. LORTAB [Concomitant]
     Indication: MIGRAINE
     Dosage: UNK, UNK
     Route: 048
  2. DRUG THERAPY NOS [Suspect]
     Dosage: UNK, UNK
     Dates: start: 20111101, end: 20111101
  3. EXCEDRIN (MIGRAINE) [Suspect]
     Indication: MIGRAINE
     Dosage: 1 TO 2 DF, IN 24 HOURS
     Route: 048
     Dates: start: 20110101, end: 20111201
  4. INDOMETHACIN [Suspect]
     Indication: GOUT
     Dosage: UNK
  5. CELEX [Concomitant]
     Dosage: 40 MG, QD
  6. DOXEPIN [Concomitant]
     Indication: INSOMNIA
     Dosage: UNK, UNK
     Route: 048
  7. XANAX [Concomitant]
  8. DIAZEPAM [Concomitant]
     Dosage: 5 MG, TID AS NEEDED
     Route: 048

REACTIONS (6)
  - HYPOAESTHESIA [None]
  - TABLET PHYSICAL ISSUE [None]
  - FALL [None]
  - BLOOD PRESSURE INCREASED [None]
  - INCORRECT STORAGE OF DRUG [None]
  - VERTIGO [None]
